FAERS Safety Report 21292417 (Version 1)
Quarter: 2022Q3

REPORT INFORMATION
  Report Type: Spontaneous
  Country: ES (occurrence: ES)
  Receive Date: 20220905
  Receipt Date: 20220905
  Transmission Date: 20221026
  Serious: Yes (Hospitalization, Disabling)
  Sender: FDA-Public Use
  Company Number: ES-NOVARTISPH-NVSC2022ES194686

PATIENT
  Age: 55 Year
  Sex: Male

DRUGS (1)
  1. LUTATHERA [Suspect]
     Active Substance: LUTETIUM OXODOTREOTIDE LU-177
     Indication: Anaplastic meningioma
     Dosage: 200 MCI (SECOND CYCLE)
     Route: 042
     Dates: start: 20220621, end: 20220818

REACTIONS (3)
  - Aphasia [Recovered/Resolved]
  - Muscular weakness [Recovered/Resolved]
  - Intentional product use issue [Unknown]
